FAERS Safety Report 9632927 (Version 2)
Quarter: 2013Q4

REPORT INFORMATION
  Report Type: Spontaneous
  Country: JP (occurrence: JP)
  Receive Date: 20131018
  Receipt Date: 20131018
  Transmission Date: 20140711
  Serious: Yes (Life-Threatening, Hospitalization)
  Sender: FDA-Public Use
  Company Number: JP-ROCHE-1273876

PATIENT
  Age: 64 Year
  Sex: Female
  Weight: 55 kg

DRUGS (7)
  1. HERCEPTIN [Suspect]
     Indication: BREAST CANCER METASTATIC
     Dosage: DOSAGE IS UNCERTAIN.
     Route: 041
     Dates: start: 20111115, end: 20111115
  2. HERCEPTIN [Suspect]
     Route: 041
     Dates: start: 20111206, end: 20130702
  3. XELODA [Suspect]
     Indication: BREAST CANCER METASTATIC
     Route: 048
     Dates: start: 20130122, end: 20130513
  4. FARESTON [Suspect]
     Indication: PRODUCT USED FOR UNKNOWN INDICATION
     Route: 048
     Dates: start: 20130820, end: 20130902
  5. TS-1 [Concomitant]
     Indication: BREAST CANCER RECURRENT
     Route: 048
     Dates: start: 20111025, end: 20120130
  6. TS-1 [Concomitant]
     Indication: BREAST CANCER RECURRENT
     Route: 048
     Dates: start: 20120207, end: 20130115
  7. CELECOX [Concomitant]
     Route: 048
     Dates: start: 20121023

REACTIONS (3)
  - Ventricular fibrillation [Recovering/Resolving]
  - Cardiac failure congestive [Not Recovered/Not Resolved]
  - Palmar-plantar erythrodysaesthesia syndrome [Unknown]
